FAERS Safety Report 15217384 (Version 1)
Quarter: 2018Q3

REPORT INFORMATION
  Report Type: Spontaneous
  Country: SA (occurrence: SA)
  Receive Date: 20180730
  Receipt Date: 20180730
  Transmission Date: 20181010
  Serious: Yes (Other)
  Sender: FDA-Public Use
  Company Number: PHHY2018SA059004

PATIENT
  Age: 30 Year
  Sex: Female

DRUGS (1)
  1. ETANERCEPT [Suspect]
     Active Substance: ETANERCEPT
     Indication: RHEUMATOID ARTHRITIS
     Dosage: UNK
     Route: 065

REACTIONS (6)
  - Haematuria [Recovered/Resolved]
  - Pallor [Unknown]
  - Swelling face [Unknown]
  - Oedema [Unknown]
  - Glomerulonephritis rapidly progressive [Recovered/Resolved]
  - Proteinuria [Recovered/Resolved]
